FAERS Safety Report 6506148 (Version 11)
Quarter: 2014Q3

REPORT INFORMATION
  Report Type: Spontaneous
  Country: US (occurrence: US)
  Receive Date: 20071217
  Receipt Date: 20140723
  Transmission Date: 20150326
  Serious: Yes (Hospitalization, Other)
  Sender: FDA-Public Use
  Company Number: US-BAYER-200715855NA

PATIENT
  Age: 38 Year
  Sex: Female
  Weight: 64 kg

DRUGS (6)
  1. LEVOTHYROXINE [Concomitant]
     Active Substance: LEVOTHYROXINE
     Indication: HYPOTHYROIDISM
  2. VALIUM [Concomitant]
     Active Substance: DIAZEPAM
     Indication: PRODUCT USED FOR UNKNOWN INDICATION
  3. AZITHROMYCIN [Concomitant]
     Active Substance: AZITHROMYCIN ANHYDROUS
     Dosage: 250 MG, UNK
     Route: 048
  4. YASMIN [Suspect]
     Active Substance: DROSPIRENONE\ETHINYL ESTRADIOL
     Indication: ORAL CONTRACEPTION
     Dosage: 1 DF (DAILY DOSE), QD, ORAL
     Route: 048
     Dates: start: 200702, end: 20071018
  5. NASONEX [Concomitant]
     Active Substance: MOMETASONE FUROATE
     Dosage: 50 MCG/24HR, UNK
     Route: 045
  6. IBUPROFEN. [Concomitant]
     Active Substance: IBUPROFEN
     Dosage: 800 MG, UNK
     Route: 048

REACTIONS (15)
  - Confusional state [Recovering/Resolving]
  - Clumsiness [Recovering/Resolving]
  - Dizziness [Recovering/Resolving]
  - VIIth nerve paralysis [Recovering/Resolving]
  - Incoherent [Recovering/Resolving]
  - Cerebrovascular accident [Recovering/Resolving]
  - Anxiety [None]
  - Muscular weakness [Recovering/Resolving]
  - Balance disorder [Recovering/Resolving]
  - Injury [Recovering/Resolving]
  - Pain [Recovering/Resolving]
  - Speech disorder [Recovering/Resolving]
  - Aphasia [Recovering/Resolving]
  - Nerve injury [None]
  - Thrombosis [None]

NARRATIVE: CASE EVENT DATE: 20071018
